FAERS Safety Report 6413265-1 (Version None)
Quarter: 2009Q4

REPORT INFORMATION
  Report Type: 
  Country: None (occurrence: None)
  Receive Date: 20091022
  Receipt Date: 20091022
  Transmission Date: 20100525
  Serious: Yes (Hospitalization)
  Sender: FDA-Public Use
  Company Number: None

PATIENT
  Age: 78 Year
  Sex: Male
  Weight: 72.5755 kg

DRUGS (1)
  1. SEROQUEL XR [Suspect]
     Indication: DEMENTIA
     Dosage: 1 TABLET DAILY PO
     Route: 048
     Dates: start: 20091017, end: 20091017

REACTIONS (2)
  - CEREBROVASCULAR ACCIDENT [None]
  - IMPAIRED SELF-CARE [None]
